FAERS Safety Report 15860027 (Version 1)
Quarter: 2019Q1

REPORT INFORMATION
  Report Type: Spontaneous
  Country: GB (occurrence: GB)
  Receive Date: 20190123
  Receipt Date: 20190123
  Transmission Date: 20190417
  Serious: Yes (Hospitalization, Other)
  Sender: FDA-Public Use
  Company Number: GB-MYLANLABS-2019M1005648

PATIENT
  Age: 51 Year
  Sex: Male

DRUGS (6)
  1. CHLORPROMAZINE. [Concomitant]
     Active Substance: CHLORPROMAZINE
     Indication: PRODUCT USED FOR UNKNOWN INDICATION
  2. HALOPERIDOL. [Concomitant]
     Active Substance: HALOPERIDOL
     Indication: PRODUCT USED FOR UNKNOWN INDICATION
     Dosage: UNK
  3. CLOZARIL [Suspect]
     Active Substance: CLOZAPINE
     Dosage: UNK
     Dates: start: 20100304, end: 20101108
  4. VALPROIC ACID. [Suspect]
     Active Substance: VALPROIC ACID
     Indication: PRODUCT USED FOR UNKNOWN INDICATION
     Dosage: UNK
     Dates: start: 20090720, end: 20091102
  5. CLOZARIL [Suspect]
     Active Substance: CLOZAPINE
     Indication: SCHIZOPHRENIA
     Dosage: UNK
     Dates: start: 19951117, end: 20091019
  6. QUETIAPINE. [Concomitant]
     Active Substance: QUETIAPINE
     Indication: PRODUCT USED FOR UNKNOWN INDICATION
     Dosage: UNK

REACTIONS (15)
  - White blood cell count decreased [Recovered/Resolved]
  - Neutropenia [Recovered/Resolved]
  - Peripheral swelling [Unknown]
  - Seizure [Unknown]
  - Treatment noncompliance [Unknown]
  - Malaise [Unknown]
  - Blood creatine phosphokinase increased [Recovered/Resolved]
  - Schizophrenia [Unknown]
  - Psychotic disorder [Recovering/Resolving]
  - Alcohol abuse [Unknown]
  - Disorientation [Unknown]
  - Food aversion [Unknown]
  - Catatonia [Unknown]
  - Infection [Unknown]
  - Labile blood pressure [Unknown]

NARRATIVE: CASE EVENT DATE: 2009
